FAERS Safety Report 23172137 (Version 2)
Quarter: 2023Q4

REPORT INFORMATION
  Report Type: Spontaneous
  Country: JP (occurrence: JP)
  Receive Date: 20231110
  Receipt Date: 20231115
  Transmission Date: 20240109
  Serious: Yes (Death, Other)
  Sender: FDA-Public Use
  Company Number: JP-AstraZeneca-CH-00504005A

PATIENT
  Sex: Female

DRUGS (1)
  1. ULTOMIRIS [Suspect]
     Active Substance: RAVULIZUMAB-CWVZ
     Indication: Paroxysmal nocturnal haemoglobinuria
     Dosage: 3000 MILLIGRAM, 8 WEEKLY
     Route: 042
     Dates: end: 20230908

REACTIONS (2)
  - Aplastic anaemia [Fatal]
  - Condition aggravated [Fatal]
